FAERS Safety Report 4966568-1 (Version None)
Quarter: 2006Q2

REPORT INFORMATION
  Report Type: 
  Country: None (occurrence: None)
  Receive Date: 20060407
  Receipt Date: 20060330
  Transmission Date: 20061013
  Serious: Yes (Hospitalization)
  Sender: FDA-Public Use
  Company Number: US-JNJFOC-20060400357

PATIENT
  Sex: Female
  Weight: 62.6 kg

DRUGS (9)
  1. FENTANYL [Suspect]
     Route: 062
  2. FENTANYL [Suspect]
     Route: 062
  3. FENTANYL [Suspect]
     Indication: CANCER PAIN
     Route: 062
  4. METHADONE HCL [Concomitant]
     Indication: PAIN
     Route: 048
  5. NEURONTIN [Concomitant]
     Route: 048
  6. OXYCODONE [Concomitant]
     Indication: PAIN
     Route: 048
  7. TARCEVA [Concomitant]
     Route: 048
  8. METOCLOPRAMIDE [Concomitant]
     Indication: DRUG USE FOR UNKNOWN INDICATION
     Route: 048
  9. CHEMOTHERAPY MEDICATION [Concomitant]
     Route: 042

REACTIONS (4)
  - APPLICATION SITE DERMATITIS [None]
  - APPLICATION SITE ERYTHEMA [None]
  - APPLICATION SITE SWELLING [None]
  - PAIN [None]
